FAERS Safety Report 18947929 (Version 1)
Quarter: 2021Q1

REPORT INFORMATION
  Report Type: Report from Study
  Country: IT (occurrence: IT)
  Receive Date: 20210226
  Receipt Date: 20210226
  Transmission Date: 20210420
  Serious: Yes (Other)
  Sender: FDA-Public Use
  Company Number: IT-PFIZER INC-2021164830

PATIENT
  Age: 73 Year
  Sex: Female
  Weight: 70 kg

DRUGS (9)
  1. NEBIVOLOL. [Concomitant]
     Active Substance: NEBIVOLOL
  2. DIBASE [Concomitant]
     Active Substance: CHOLECALCIFEROL
     Dates: start: 20190529
  3. FULVESTRANT. [Suspect]
     Active Substance: FULVESTRANT
     Indication: BREAST CANCER
     Dosage: 500 MG FREQ:4 WK;
     Route: 030
     Dates: start: 20200608
  4. OLPRESS [Concomitant]
     Active Substance: OLMESARTAN MEDOXOMIL
     Dates: start: 20191113
  5. PACLITAXEL. [Suspect]
     Active Substance: PACLITAXEL
     Indication: BREAST CANCER
     Dosage: 145 MG WEEKLY (MOST RECENT DOSE WAS RECEIVED ON 06MAR2019)
     Route: 042
     Dates: start: 20181112
  6. PALBOCICLIB [Suspect]
     Active Substance: PALBOCICLIB
     Indication: BREAST CANCER
     Dosage: 125 MG OTHER
     Route: 048
     Dates: start: 20200608
  7. TRASTUZUMAB. [Suspect]
     Active Substance: TRASTUZUMAB
     Indication: BREAST CANCER
     Dosage: 6 MG/KG EVERY 3 WEEKS (MOST RECENT DOSE WAS RECEIVED ON 21JAN2019)
     Route: 041
     Dates: start: 20181112
  8. EXEMESTANE. [Suspect]
     Active Substance: EXEMESTANE
     Indication: BREAST CANCER
     Dosage: 25 MG 1X/DAY MOST RECENT DOSE WAS RECEIVED ON 07/JUN/2020.
     Route: 048
     Dates: start: 20190320
  9. PERTUZUMAB. [Suspect]
     Active Substance: PERTUZUMAB
     Indication: BREAST CANCER
     Dosage: 420 MG EVERY 3 WEEKS (MOST RECENT DOSE WAS RECEIVED ON 27MAR2020.)
     Route: 042
     Dates: start: 20181112

REACTIONS (1)
  - Neutropenia [Recovered/Resolved]

NARRATIVE: CASE EVENT DATE: 20201026
